FAERS Safety Report 15700588 (Version 2)
Quarter: 2019Q2

REPORT INFORMATION
  Report Type: Report from Study
  Country: US (occurrence: US)
  Receive Date: 20181207
  Receipt Date: 20190510
  Transmission Date: 20190711
  Serious: No
  Sender: FDA-Public Use
  Company Number: US-SHIRE-US201847113

PATIENT
  Sex: Male

DRUGS (2)
  1. ELAPRASE [Suspect]
     Active Substance: IDURSULFASE
     Indication: MUCOPOLYSACCHARIDOSIS II
     Dosage: 7 VIALS, 1X/WEEK
     Route: 042
     Dates: start: 20061019
  2. ELAPRASE [Suspect]
     Active Substance: IDURSULFASE
     Dosage: 7 VIALS, 1X/WEEK
     Route: 042
     Dates: start: 20160315

REACTIONS (3)
  - Infusion site reaction [Unknown]
  - Swelling [Not Recovered/Not Resolved]
  - Bone swelling [Unknown]
